FAERS Safety Report 21037534 (Version 2)
Quarter: 2022Q3

REPORT INFORMATION
  Report Type: Spontaneous
  Country: US (occurrence: US)
  Receive Date: 20220703
  Receipt Date: 20220917
  Transmission Date: 20221026
  Serious: Yes (Other)
  Sender: FDA-Public Use
  Company Number: US-JNJFOC-20220654776

PATIENT
  Age: 76 Year
  Sex: Female
  Weight: 43.584 kg

DRUGS (7)
  1. STELARA [Suspect]
     Active Substance: USTEKINUMAB
     Indication: Crohn^s disease
     Route: 040
     Dates: start: 20220609
  2. STELARA [Suspect]
     Active Substance: USTEKINUMAB
     Route: 058
     Dates: start: 20220806
  3. ZINC [Concomitant]
     Active Substance: ZINC
  4. DIETARY SUPPLEMENT [Concomitant]
     Active Substance: DIETARY SUPPLEMENT
  5. DIETARY SUPPLEMENT\RESVERATROL [Concomitant]
     Active Substance: DIETARY SUPPLEMENT\RESVERATROL
  6. GLUCOSAMINE [Concomitant]
     Active Substance: GLUCOSAMINE
  7. COVID-19 VACCINE [Concomitant]

REACTIONS (3)
  - Crohn^s disease [Not Recovered/Not Resolved]
  - Palpitations [Unknown]
  - Drug ineffective [Not Recovered/Not Resolved]
